FAERS Safety Report 8124125-2 (Version None)
Quarter: 2012Q1

REPORT INFORMATION
  Report Type: 
  Country: None (occurrence: None)
  Receive Date: 20120209
  Receipt Date: 20120207
  Transmission Date: 20120608
  Serious: Yes (Life-Threatening, Hospitalization)
  Sender: FDA-Public Use
  Company Number: AU-B.I. PHARMACEUTICALS,INC./RIDGEFIELD-2011-AU-02537AU

PATIENT
  Sex: Male
  Weight: 86 kg

DRUGS (11)
  1. CHOLECALCIFEROL [Concomitant]
     Dosage: 25 MCG
  2. ACETAMINOPHEN [Concomitant]
     Dosage: 3990 MG
  3. PRADAXA [Suspect]
     Indication: CEREBROVASCULAR ACCIDENT PROPHYLAXIS
     Dosage: 300 MG
     Route: 048
     Dates: start: 20111014, end: 20111129
  4. NITROLINGUAL PUMPSPRAY [Concomitant]
     Dosage: 400MCG/DOSE
  5. OMEPRAZOLE [Concomitant]
     Dosage: 20 MG
  6. PRADAXA [Suspect]
     Indication: ATRIAL FIBRILLATION
  7. ATORVASTATIN [Concomitant]
     Dosage: 20 MG
  8. TEMAZEPAM [Concomitant]
     Dosage: 10 MG
  9. RAMIPRIL [Concomitant]
     Dosage: 2.5 MG
  10. METFORMIN HCL [Concomitant]
     Dosage: 500 MG
  11. METOPROLOL TARTRATE [Concomitant]
     Dosage: 25 MG

REACTIONS (4)
  - GASTROINTESTINAL HAEMORRHAGE [None]
  - GASTRIC POLYPS [None]
  - DUODENITIS [None]
  - MELAENA [None]
